FAERS Safety Report 17587916 (Version 1)
Quarter: 2020Q1

REPORT INFORMATION
  Report Type: Spontaneous
  Country: US (occurrence: US)
  Receive Date: 20200327
  Receipt Date: 20200327
  Transmission Date: 20200409
  Serious: No
  Sender: FDA-Public Use
  Company Number: US-TEVA-2020-US-1212109

PATIENT
  Sex: Male

DRUGS (4)
  1. TAMSULOSIN HCL [Concomitant]
     Active Substance: TAMSULOSIN HYDROCHLORIDE
  2. LOSARTAN POTASSIUM. [Concomitant]
     Active Substance: LOSARTAN POTASSIUM
  3. FENOFIBRATE. [Concomitant]
     Active Substance: FENOFIBRATE
  4. SYNRIBO [Suspect]
     Active Substance: OMACETAXINE MEPESUCCINATE
     Indication: CHRONIC MYELOID LEUKAEMIA
     Dosage: DOSAGE: 2.25MG/0.64ML AND FREQUENCY: TWICE DAILY X 5 DAYS OF A 28 DAY CYCLE
     Dates: start: 20190315

REACTIONS (1)
  - Infection [Unknown]
